FAERS Safety Report 8555661-2 (Version None)
Quarter: 2012Q3

REPORT INFORMATION
  Report Type: 
  Country: None (occurrence: None)
  Receive Date: 20120801
  Receipt Date: 20120721
  Transmission Date: 20120928
  Serious: Yes (Hospitalization, Other)
  Sender: FDA-Public Use
  Company Number: FR-PAR PHARMACEUTICAL, INC-2012SCPR004521

PATIENT

DRUGS (12)
  1. DIAZEPAM [Suspect]
     Dosage: 10 MG, / DAY
     Route: 065
  2. ALCOHOL [Suspect]
     Indication: PRODUCT USED FOR UNKNOWN INDICATION
     Dosage: UNK, UNKNOWN
     Route: 065
  3. HYDROXYZINE [Concomitant]
     Indication: PRODUCT USED FOR UNKNOWN INDICATION
     Dosage: 150 MG, / DAY
     Route: 065
  4. DIAZEPAM [Suspect]
     Indication: PRODUCT USED FOR UNKNOWN INDICATION
     Dosage: 40 MG, / DAY
     Route: 065
  5. VENLAFAXINE [Concomitant]
     Indication: PRODUCT USED FOR UNKNOWN INDICATION
     Dosage: 225 MG, / DAY
     Route: 065
  6. TAMOXIFEN CITRATE [Concomitant]
     Indication: BREAST CANCER
     Dosage: 20 MG, / DAY
     Route: 065
  7. DIAZEPAM [Suspect]
     Dosage: 30 MG, / DAY
     Route: 065
  8. TRAMADOL HYDROCHLORIDE [Concomitant]
     Indication: BONE PAIN
  9. ACAMPROSATE [Concomitant]
     Indication: PRODUCT USED FOR UNKNOWN INDICATION
     Dosage: 1332 MG, / DAY
     Route: 065
  10. TRAMADOL HYDROCHLORIDE [Concomitant]
     Indication: ARTHRITIS
     Dosage: 50 MG, / DAY
     Route: 065
  11. DIAZEPAM [Suspect]
     Dosage: 40 MG, / DAY
     Route: 065
  12. DIAZEPAM [Suspect]
     Dosage: 40 MG, / DAY
     Route: 065

REACTIONS (3)
  - ANXIETY DISORDER [None]
  - DRUG WITHDRAWAL SYNDROME [None]
  - CATATONIA [None]
